FAERS Safety Report 23133338 (Version 1)
Quarter: 2023Q4

REPORT INFORMATION
  Report Type: Spontaneous
  Country: US (occurrence: None)
  Receive Date: 20231031
  Receipt Date: 20231031
  Transmission Date: 20240110
  Serious: No
  Sender: FDA-Public Use
  Company Number: None

PATIENT
  Age: 45 Year
  Sex: Male

DRUGS (3)
  1. CABENUVA [Suspect]
     Active Substance: CABOTEGRAVIR\RILPIVIRINE
  2. HEPATITIS B VIRUS VACCINE [Suspect]
     Active Substance: HEPATITIS B VIRUS VACCINE
  3. HUMAN PAPILLOMAVIRUS QUADRIVALENT (TYPES 6, 11, 16, AND 18) VACCINE, R [Suspect]
     Active Substance: HUMAN PAPILLOMAVIRUS QUADRIVALENT (TYPES 6, 11, 16, AND 18) VACCINE, RECOMBINANT

REACTIONS (10)
  - Musculoskeletal pain [None]
  - Injection site pain [None]
  - Injection site swelling [None]
  - Hyperhidrosis [None]
  - Illness [None]
  - Gait disturbance [None]
  - Product use issue [None]
  - Product administered to patient of inappropriate age [None]
  - Complication associated with device [None]
  - Immunisation reaction [None]

NARRATIVE: CASE EVENT DATE: 20230927
